FAERS Safety Report 9360519 (Version 1)
Quarter: 2013Q3

REPORT INFORMATION
  Report Type: Spontaneous
  Country: US (occurrence: None)
  Receive Date: 20130620
  Receipt Date: 20130620
  Transmission Date: 20140515
  Serious: Yes (Hospitalization)
  Sender: FDA-Public Use
  Company Number: None

PATIENT
  Age: 64 Year
  Sex: Male

DRUGS (4)
  1. ENBREL [Suspect]
     Indication: OSTEOARTHRITIS
     Dosage: 500
     Route: 048
     Dates: start: 20130403, end: 20130520
  2. AMLODIPINE [Concomitant]
  3. OMEPRAZOLE [Concomitant]
  4. ALLOPURINOL [Concomitant]

REACTIONS (3)
  - Chills [None]
  - Dyspnoea [None]
  - Cough [None]
